FAERS Safety Report 22161368 (Version 1)
Quarter: 2023Q1

REPORT INFORMATION
  Report Type: Report from Study
  Country: NL (occurrence: NL)
  Receive Date: 20230331
  Receipt Date: 20230331
  Transmission Date: 20230418
  Serious: Yes (Other)
  Sender: FDA-Public Use
  Company Number: NL-AstraZeneca-2023A071692

PATIENT
  Sex: Male
  Weight: 5 kg

DRUGS (2)
  1. SYNAGIS [Suspect]
     Active Substance: PALIVIZUMAB
     Indication: Gestational age test
     Dosage: FREQUENCY: MONTHLY
     Route: 030
     Dates: start: 20221005
  2. MACROGOL PDR V DR SACH [Concomitant]
     Indication: Product used for unknown indication

REACTIONS (3)
  - Infantile spitting up [Recovered/Resolved]
  - Abnormal weight gain [Recovered/Resolved]
  - Weight decreased [Not Recovered/Not Resolved]
